FAERS Safety Report 5372363-4 (Version None)
Quarter: 2007Q2

REPORT INFORMATION
  Report Type: 
  Country: None (occurrence: None)
  Receive Date: 20070615
  Receipt Date: 20060827
  Transmission Date: 20071010
  Serious: Yes (Other)
  Sender: FDA-Public Use
  Company Number: 200617216US

PATIENT
  Age: 49 Year
  Sex: Male

DRUGS (2)
  1. LANTUS [Suspect]
     Indication: DIABETES MELLITUS NON-INSULIN-DEPENDENT
     Dosage: 30 U QD SC
     Route: 058
     Dates: start: 20060827
  2. INSULIN (HUMALOG /00030501/) [Concomitant]

REACTIONS (1)
  - HYPERGLYCAEMIA [None]
